FAERS Safety Report 18898703 (Version 1)
Quarter: 2021Q1

REPORT INFORMATION
  Report Type: Spontaneous
  Country: US (occurrence: US)
  Receive Date: 20210216
  Receipt Date: 20210216
  Transmission Date: 20210420
  Serious: Yes (Other)
  Sender: FDA-Public Use
  Company Number: US-CHIASMA-2021CHI00027

PATIENT
  Sex: Female

DRUGS (1)
  1. MYCAPSSA [Suspect]
     Active Substance: OCTREOTIDE
     Dosage: 40 MG PER DAY
     Route: 048
     Dates: start: 20201020

REACTIONS (1)
  - Cataract [Not Recovered/Not Resolved]
